FAERS Safety Report 7506995-1 (Version None)
Quarter: 2011Q2

REPORT INFORMATION
  Report Type: 
  Country: None (occurrence: None)
  Receive Date: 20110526
  Receipt Date: 20110524
  Transmission Date: 20111010
  Serious: Yes (Life-Threatening)
  Sender: FDA-Public Use
  Company Number: GXKR2011DE01812

PATIENT
  Age: 80 Year
  Sex: Female
  Weight: 65 kg

DRUGS (15)
  1. RAMIPRIL [Concomitant]
     Indication: HYPERTENSION
     Dosage: 5 MG, BID
     Route: 048
     Dates: start: 20061201
  2. OLMESARTAN MEDOXOMIL AND HYDROCHLOROTHIZIDE [Concomitant]
     Indication: HYPERTENSION
     Dosage: 1 DF, QD
     Route: 048
     Dates: start: 20070101
  3. OPIPRAMOL [Concomitant]
     Route: 048
     Dates: start: 20100801, end: 20100901
  4. FUROSEMIDE AL [Concomitant]
     Dosage: 10 MG, QD
     Route: 048
     Dates: start: 20100501
  5. DEKRISTOL [Concomitant]
     Dosage: 3 DF, QMO
     Route: 065
  6. ALENDRONATE SODIUM [Suspect]
     Dosage: 70 MG, QW
     Route: 048
     Dates: start: 20101001
  7. MARCUMAR [Interacting]
     Indication: ATRIAL FIBRILLATION
     Route: 048
     Dates: start: 20080401
  8. BISOPROLOL FUMARATE [Concomitant]
     Dosage: 5 MG, BID
     Route: 048
     Dates: start: 20070901
  9. AMLODIPINE [Concomitant]
     Indication: HYPERTENSION
     Dosage: 10 MG, QD
     Route: 048
     Dates: start: 20070601
  10. VALPROATE SODIUM [Concomitant]
     Indication: SYNCOPE
     Dosage: 500 MG, QHS
     Route: 048
  11. LEVOTHYROXINE SODIUM [Concomitant]
     Indication: GOITRE
     Dosage: 50 UG, QD
     Route: 048
     Dates: start: 20080201
  12. ISDN ^STADA^ [Concomitant]
     Indication: HYPERTENSION
     Dosage: 20 MG, QHS
     Route: 048
     Dates: start: 20050401
  13. FUROSEMIDE AL [Concomitant]
     Indication: OEDEMA PERIPHERAL
     Dosage: 10 MG, BID
     Route: 048
     Dates: start: 20100301
  14. BROMAZEPAM [Concomitant]
     Indication: INSOMNIA
     Dosage: 1.5 MG, QHS
     Route: 048
     Dates: start: 20090601
  15. DOXEPIN [Concomitant]
     Indication: INSOMNIA
     Dosage: 50 MG, QHS
     Route: 048
     Dates: start: 20100801

REACTIONS (2)
  - DRUG INTERACTION [None]
  - DRUG EFFECT INCREASED [None]
